FAERS Safety Report 7577507-1 (Version None)
Quarter: 2011Q2

REPORT INFORMATION
  Report Type: 
  Country: None (occurrence: None)
  Receive Date: 20110621
  Receipt Date: 20110608
  Transmission Date: 20111010
  Serious: Yes (Hospitalization)
  Sender: FDA-Public Use
  Company Number: DATS-NO-1106S-0007

PATIENT
  Age: 76 Year
  Sex: Female

DRUGS (5)
  1. WARFARIN SODIUM [Concomitant]
  2. BISOPROLOL FUMARATE [Concomitant]
  3. LIPATOR (ATORVASTATIN CALCIUM) [Concomitant]
  4. DATSCAN [Suspect]
     Indication: PARKINSON'S DISEASE
     Dosage: 183.2 MBQ, SINGLE DOSE, INTRAVENOUS
     Route: 042
     Dates: start: 20110407, end: 20110407
  5. VISTARIL (HYDROXYZINE HYDROCHLORIDE) [Concomitant]

REACTIONS (4)
  - NAUSEA [None]
  - BLOOD SODIUM DECREASED [None]
  - FATIGUE [None]
  - VOMITING [None]
